FAERS Safety Report 7312998-2 (Version None)
Quarter: 2011Q1

REPORT INFORMATION
  Report Type: 
  Country: None (occurrence: None)
  Receive Date: 20110225
  Receipt Date: 20110218
  Transmission Date: 20110831
  Serious: Yes (Hospitalization, Other)
  Sender: FDA-Public Use
  Company Number: US-ASTRAZENECA-2009UW08171

PATIENT
  Age: 43 Year
  Sex: Male
  Weight: 95.3 kg

DRUGS (27)
  1. ZOLOFT [Concomitant]
     Dates: start: 20031222
  2. LEXAPRO [Concomitant]
     Dates: start: 20030929
  3. SEROQUEL [Suspect]
     Route: 048
     Dates: start: 20010101, end: 20040101
  4. SYNTHROID [Concomitant]
     Dosage: 175MCG, 0.15 MG DAILY
     Dates: start: 20040105
  5. VIOXX [Concomitant]
     Dates: start: 20040105
  6. PROPO-N/APAP [Concomitant]
     Dosage: 100-650MG
     Dates: start: 20030929
  7. SEROQUEL [Suspect]
     Route: 048
     Dates: start: 20031222
  8. ABILIFY [Concomitant]
     Route: 048
     Dates: start: 20060531
  9. ALPRAZOLAM [Concomitant]
     Dates: start: 20031125
  10. EFFEXOR XR [Concomitant]
     Dates: start: 20031125
  11. SEROQUEL [Suspect]
     Indication: PSYCHOTIC DISORDER
     Route: 048
     Dates: start: 20010101, end: 20031201
  12. SEROQUEL [Suspect]
     Dosage: 100MG-600MG
     Route: 048
     Dates: start: 20031204
  13. SEROQUEL [Suspect]
     Route: 048
     Dates: start: 20031222
  14. SEROQUEL [Suspect]
     Dosage: 300MG
     Route: 048
     Dates: start: 20040102
  15. SYNTHROID [Concomitant]
     Dosage: 175 QD
     Dates: start: 20031222
  16. RISPERDAL [Concomitant]
     Dosage: ONE OR TWO WEEKS
     Dates: start: 20031101
  17. SEROQUEL [Suspect]
     Indication: BIPOLAR DISORDER
     Route: 048
     Dates: start: 20010101, end: 20031201
  18. SEROQUEL [Suspect]
     Route: 048
     Dates: start: 20010101, end: 20040101
  19. SEROQUEL [Suspect]
     Dosage: 300MG
     Route: 048
     Dates: start: 20040102
  20. CYMBALTA [Concomitant]
     Route: 048
  21. SEROQUEL [Suspect]
     Dosage: 100MG-600MG
     Route: 048
     Dates: start: 20031204
  22. DEPAKOTE [Concomitant]
     Indication: AFFECTIVE DISORDER
     Dosage: 250MG - 1000MG
     Dates: start: 20031204
  23. DEPAKOTE [Concomitant]
     Dates: start: 20031222
  24. ZOLOFT [Concomitant]
     Dates: start: 20031204
  25. SYNTHROID [Concomitant]
     Indication: THYROID DISORDER
     Dosage: 100MCG - 150 MCG,
     Dates: start: 20031204
  26. NASONEX [Concomitant]
     Dosage: 50MCG/AC SPR
     Dates: start: 20031106
  27. TRILEPTAL [Concomitant]
     Dosage: 300-600 MG
     Route: 048
     Dates: start: 20060531

REACTIONS (5)
  - DIABETIC COMPLICATION [None]
  - ERECTILE DYSFUNCTION [None]
  - ARTHRALGIA [None]
  - ARTHROPATHY [None]
  - TYPE 2 DIABETES MELLITUS [None]
